FAERS Safety Report 17443836 (Version 1)
Quarter: 2020Q1

REPORT INFORMATION
  Report Type: Spontaneous
  Country: US (occurrence: US)
  Receive Date: 20200220
  Receipt Date: 20200220
  Transmission Date: 20200409
  Serious: No
  Sender: FDA-Public Use
  Company Number: None

PATIENT
  Age: 22 Year
  Sex: Male
  Weight: 60.75 kg

DRUGS (1)
  1. SPRAVATO [Suspect]
     Active Substance: ESKETAMINE
     Indication: DEPRESSION
     Dosage: ?          QUANTITY:84 SPRAY(S);?
     Route: 055
     Dates: start: 20200122, end: 20200213

REACTIONS (1)
  - Mania [None]

NARRATIVE: CASE EVENT DATE: 20200213
